FAERS Safety Report 19089575 (Version 1)
Quarter: 2021Q2

REPORT INFORMATION
  Report Type: Spontaneous
  Country: CN (occurrence: CN)
  Receive Date: 20210403
  Receipt Date: 20210403
  Transmission Date: 20210717
  Serious: Yes (Life-Threatening, Hospitalization)
  Sender: FDA-Public Use
  Company Number: CN-JNJFOC-20210357544

PATIENT
  Sex: Male

DRUGS (1)
  1. IBUPROFEN. [Suspect]
     Active Substance: IBUPROFEN
     Indication: ANTIPYRESIS
     Route: 065

REACTIONS (10)
  - Capillary leak syndrome [Unknown]
  - Viral rash [Unknown]
  - Metabolic acidosis [Unknown]
  - Drug reaction with eosinophilia and systemic symptoms [Unknown]
  - Blood potassium decreased [Unknown]
  - Electrolyte imbalance [Unknown]
  - Diarrhoea [Unknown]
  - Dehydration [Unknown]
  - Hyperchloraemia [Unknown]
  - Upper respiratory tract infection [Unknown]
